FAERS Safety Report 12661051 (Version 3)
Quarter: 2016Q4

REPORT INFORMATION
  Report Type: Spontaneous
  Country: US (occurrence: US)
  Receive Date: 20160817
  Receipt Date: 20161106
  Transmission Date: 20170207
  Serious: No
  Sender: FDA-Public Use
  Company Number: US-RELYPSA-RLY2016000522

PATIENT
  Age: 66 Year
  Sex: Male

DRUGS (12)
  1. SYNTHROID [Concomitant]
     Active Substance: LEVOTHYROXINE SODIUM
  2. VITAMIN D                          /00107901/ [Concomitant]
     Active Substance: ERGOCALCIFEROL
  3. PRAVACHOL [Concomitant]
     Active Substance: PRAVASTATIN SODIUM
  4. OXYBUTYNIN CHLORIDE. [Concomitant]
     Active Substance: OXYBUTYNIN CHLORIDE
  5. PRILOSEC [Concomitant]
     Active Substance: OMEPRAZOLE MAGNESIUM
  6. HYDRALAZINE HCL [Concomitant]
     Active Substance: HYDRALAZINE HYDROCHLORIDE
  7. IRON [Concomitant]
     Active Substance: IRON
  8. VERAPAMIL HCL [Concomitant]
     Active Substance: VERAPAMIL HYDROCHLORIDE
  9. VELTASSA [Suspect]
     Active Substance: PATIROMER
     Indication: HYPERKALAEMIA
     Dosage: 16.8 G, QD
     Route: 048
     Dates: start: 20160427
  10. DILAUDID [Concomitant]
     Active Substance: HYDROMORPHONE HYDROCHLORIDE
  11. LASIX [Concomitant]
     Active Substance: FUROSEMIDE
  12. LEXAPRO [Concomitant]
     Active Substance: ESCITALOPRAM OXALATE

REACTIONS (1)
  - Constipation [Unknown]

NARRATIVE: CASE EVENT DATE: 20160427
